FAERS Safety Report 18810662 (Version 1)
Quarter: 2021Q1

REPORT INFORMATION
  Report Type: Spontaneous
  Country: IN (occurrence: IN)
  Receive Date: 20210130
  Receipt Date: 20210130
  Transmission Date: 20210419
  Serious: Yes (Other)
  Sender: FDA-Public Use
  Company Number: IN-LUPIN PHARMACEUTICALS INC.-2021-00889

PATIENT
  Age: 39 Year
  Sex: Female

DRUGS (2)
  1. DIENOGEST [Suspect]
     Active Substance: DIENOGEST
     Indication: HORMONE THERAPY
     Dosage: 2 MILLIGRAM, QD
     Route: 048
  2. LEVONORGESTREL. [Suspect]
     Active Substance: LEVONORGESTREL
     Indication: HORMONE THERAPY
     Dosage: LEVONORGESTREL?RELEASING INTRAUTERINE SYSTEM INSERTED 2 MONTHS POST?SURGERY
     Route: 015

REACTIONS (2)
  - Vulvovaginal candidiasis [Not Recovered/Not Resolved]
  - Metrorrhagia [Unknown]
